FAERS Safety Report 13046064 (Version 1)
Quarter: 2016Q4

REPORT INFORMATION
  Report Type: Spontaneous
  Country: US (occurrence: US)
  Receive Date: 20161220
  Receipt Date: 20161220
  Transmission Date: 20170207
  Serious: No
  Sender: FDA-Public Use
  Company Number: US-BRISTOL-MYERS SQUIBB COMPANY-BMS-2016-107053

PATIENT
  Sex: Female
  Weight: 91.6 kg

DRUGS (1)
  1. OPDIVO [Suspect]
     Active Substance: NIVOLUMAB
     Indication: PRODUCT USED FOR UNKNOWN INDICATION
     Dosage: UNK UNK, Q2WK
     Route: 042

REACTIONS (5)
  - Influenza like illness [Unknown]
  - Pharyngitis [Unknown]
  - Diarrhoea [Unknown]
  - Ear infection [Unknown]
  - Alopecia [Unknown]
